FAERS Safety Report 4502130-2 (Version None)
Quarter: 2004Q4

REPORT INFORMATION
  Report Type: 
  Country: None (occurrence: None)
  Receive Date: 20041109
  Receipt Date: 20041022
  Transmission Date: 20050328
  Serious: Yes (Other)
  Sender: FDA-Public Use
  Company Number: FR_040704431

PATIENT
  Age: 67 Year
  Sex: Male
  Weight: 70 kg

DRUGS (3)
  1. CELANCE (PERGOLIDE MESYLATE) [Suspect]
     Indication: PARKINSON'S DISEASE
     Dosage: 0.5 MG/3 DAY
     Dates: start: 20040101, end: 20040601
  2. SELEGILINE HCL [Concomitant]
  3. GLYCERINE SUPPOSITORIES [Concomitant]

REACTIONS (12)
  - ABDOMINAL MASS [None]
  - ABDOMINAL PAIN LOWER [None]
  - ANGIOPATHY [None]
  - BACK PAIN [None]
  - BENIGN PROSTATIC HYPERPLASIA [None]
  - C-REACTIVE PROTEIN INCREASED [None]
  - HYDRONEPHROSIS [None]
  - HYPERCREATININAEMIA [None]
  - INSOMNIA [None]
  - OEDEMA PERIPHERAL [None]
  - RETROPERITONEAL FIBROSIS [None]
  - URETERAL DISORDER [None]
